FAERS Safety Report 11649547 (Version 2)
Quarter: 2015Q4

REPORT INFORMATION
  Report Type: Spontaneous
  Country: US (occurrence: US)
  Receive Date: 20151021
  Receipt Date: 20151102
  Transmission Date: 20160304
  Serious: No
  Sender: FDA-Public Use
  Company Number: US-BAYER-2015-443979

PATIENT
  Sex: Female

DRUGS (1)
  1. MIRALAX [Suspect]
     Active Substance: POLYETHYLENE GLYCOL 3350
     Indication: PRODUCT USED FOR UNKNOWN INDICATION

REACTIONS (8)
  - Nasal obstruction [None]
  - Head discomfort [None]
  - Pharyngeal oedema [None]
  - Dry mouth [None]
  - Flatulence [None]
  - Product reconstitution issue [None]
  - Nasal oedema [None]
  - Drug prescribing error [None]

NARRATIVE: CASE EVENT DATE: 20151012
